FAERS Safety Report 7074823-7 (Version None)
Quarter: 2010Q4

REPORT INFORMATION
  Report Type: 
  Country: None (occurrence: None)
  Receive Date: 20101029
  Receipt Date: 20101025
  Transmission Date: 20110411
  Serious: Yes (Other)
  Sender: FDA-Public Use
  Company Number: BR-ABBOTT-10P-020-0669208-00

PATIENT
  Sex: Female

DRUGS (8)
  1. HUMIRA [Suspect]
     Indication: RHEUMATOID ARTHRITIS
     Route: 058
  2. ZETSIM [Concomitant]
     Indication: BLOOD CHOLESTEROL
     Dosage: 10MG + 20MG
     Route: 048
  3. VYTORIN [Concomitant]
     Indication: BLOOD CHOLESTEROL INCREASED
     Dosage: 10/10
     Route: 048
  4. BONALEN [Concomitant]
     Indication: BONE DISORDER
     Route: 048
  5. OS-CAL + D [Concomitant]
     Indication: OSTEOPOROSIS PROPHYLAXIS
     Route: 048
  6. CALCIFEROL [Concomitant]
     Indication: VITAMIN D DEFICIENCY
     Route: 048
  7. CEWIN [Concomitant]
     Indication: VITAMIN SUPPLEMENTATION
     Route: 048
  8. ARTROLIVE [Concomitant]
     Indication: CHONDROPATHY
     Dosage: 500MG/ 400MG
     Route: 048

REACTIONS (2)
  - HYPERTENSION [None]
  - MENISCUS LESION [None]
